FAERS Safety Report 6267296-5 (Version None)
Quarter: 2009Q3

REPORT INFORMATION
  Report Type: 
  Country: None (occurrence: None)
  Receive Date: 20090714
  Receipt Date: 20090702
  Transmission Date: 20100115
  Serious: Yes (Other)
  Sender: FDA-Public Use
  Company Number: CN-PFIZER INC-2009234814

PATIENT
  Age: 47 Year

DRUGS (4)
  1. SULPERAZON [Suspect]
     Indication: PSEUDOMONAS INFECTION
     Dosage: 2 G, 2X/DAY
     Route: 042
  2. TAZOCIN [Concomitant]
  3. ZYVOX [Concomitant]
  4. CIPROFLOXACIN HYDROCHLORIDE [Concomitant]

REACTIONS (3)
  - DRUG INEFFECTIVE [None]
  - MUSCULOSKELETAL DISORDER [None]
  - NECROSIS [None]
